FAERS Safety Report 14840522 (Version 3)
Quarter: 2018Q3

REPORT INFORMATION
  Report Type: Other
  Country: DE (occurrence: DE)
  Receive Date: 20180503
  Receipt Date: 20180821
  Transmission Date: 20181010
  Serious: Yes (Hospitalization)
  Sender: FDA-Public Use
  Company Number: DE-MACLEODS PHARMACEUTICALS US LTD-MAC2018012858

PATIENT

DRUGS (10)
  1. TAMSULOSIN [Suspect]
     Active Substance: TAMSULOSIN
     Indication: PRODUCT USED FOR UNKNOWN INDICATION
     Dosage: 0.4 MILLIGRAM, QD, (1?0?0?0)
     Route: 065
  2. VALSARTAN AND HYDROCHLOROTHIAZIDE [Suspect]
     Active Substance: HYDROCHLOROTHIAZIDE\VALSARTAN
     Indication: PRODUCT USED FOR UNKNOWN INDICATION
     Dosage: UNK UNK, QD, (160|25 MG, 1?0?0?0) VALSARTAN COMP. ABZ 160MG/12,5MG
     Route: 065
  3. MOVICOL [Concomitant]
     Active Substance: POLYETHYLENE GLYCOL 3350\POTASSIUM CHLORIDE\SODIUM BICARBONATE\SODIUM CHLORIDE
     Indication: PRODUCT USED FOR UNKNOWN INDICATION
     Dosage: UNK UNK, BID, (1?0?1?0)
     Route: 065
  4. LISALGIL [Suspect]
     Active Substance: METAMIZOLE SODIUM
     Dosage: ,30 GTT DROPS,QID 1 IN 6 HRS 30 DROP, QID
  5. OXYCODONE [Suspect]
     Active Substance: OXYCODONE
     Indication: PRODUCT USED FOR UNKNOWN INDICATION
     Dosage: 10 MILLIGRAM, QD, (1?0?0?0)
     Route: 065
  6. IBUPROFEN. [Concomitant]
     Active Substance: IBUPROFEN
     Indication: PRODUCT USED FOR UNKNOWN INDICATION
     Dosage: 400 MILLIGRAM, BID, (2?0?2?0)
     Route: 065
  7. LISALGIL [Suspect]
     Active Substance: METAMIZOLE SODIUM
     Indication: PRODUCT USED FOR UNKNOWN INDICATION
     Dosage: 120 DROP,30 DROPS,  4 TIMES DAILY (1?1?1?1), EVERY 6 HOURS
     Route: 065
  8. CLOPIDOGREL [Concomitant]
     Active Substance: CLOPIDOGREL BISULFATE
     Indication: PRODUCT USED FOR UNKNOWN INDICATION
     Dosage: 75 MILLIGRAM, QD, (1?0?0?0)
     Route: 065
  9. XELEVIA [Concomitant]
     Active Substance: SITAGLIPTIN PHOSPHATE
     Indication: PRODUCT USED FOR UNKNOWN INDICATION
     Dosage: 100 MILLIGRAM, QD, (1?0?0?0)
     Route: 065
  10. METAMIZOL [Suspect]
     Active Substance: METAMIZOLE SODIUM
     Indication: PRODUCT USED FOR UNKNOWN INDICATION
     Dosage: 30 DROP, QOD, 30 GTT, (1?1?1?1)
     Route: 065

REACTIONS (2)
  - Memory impairment [Unknown]
  - Fall [Unknown]
